FAERS Safety Report 22128928 (Version 2)
Quarter: 2024Q4

REPORT INFORMATION
  Report Type: Spontaneous
  Country: US (occurrence: US)
  Receive Date: 20230323
  Receipt Date: 20241003
  Transmission Date: 20250114
  Serious: Yes (Other)
  Sender: NOVARTIS
  Company Number: US-002147023-NVSC2023US063566

PATIENT
  Sex: Female
  Weight: 84.37 kg

DRUGS (6)
  1. FEMARA [Suspect]
     Active Substance: LETROZOLE
     Indication: Product used for unknown indication
     Dosage: UNK (10 YEARS)
     Route: 065
     Dates: start: 2012, end: 202011
  2. IBRANCE [Suspect]
     Active Substance: PALBOCICLIB
     Indication: Breast cancer
     Dosage: 125 MG, (FOR 1 MONTH)
     Route: 065
     Dates: start: 202012
  3. IBRANCE [Suspect]
     Active Substance: PALBOCICLIB
     Dosage: 75 MG, (14 DAYS ON AND 14 DAYS OFF)
     Route: 065
     Dates: start: 202101
  4. FULVESTRANT [Suspect]
     Active Substance: FULVESTRANT
     Indication: Product used for unknown indication
     Dosage: UNK
     Route: 065
     Dates: start: 202012
  5. LISINOPRIL [Concomitant]
     Active Substance: LISINOPRIL
     Indication: Blood pressure management
     Dosage: 40 MG
     Route: 065
     Dates: start: 2022
  6. ROSUVASTATIN [Concomitant]
     Active Substance: ROSUVASTATIN
     Indication: Blood cholesterol
     Dosage: 5 MG
     Route: 065

REACTIONS (7)
  - Intracranial aneurysm [Unknown]
  - Venous haemorrhage [Unknown]
  - Cerebrovascular accident [Unknown]
  - Paralysis [Unknown]
  - Neoplasm progression [Unknown]
  - Reading disorder [Unknown]
  - Language disorder [Unknown]
